FAERS Safety Report 11096826 (Version 1)
Quarter: 2015Q2

REPORT INFORMATION
  Report Type: Spontaneous
  Country: US (occurrence: None)
  Receive Date: 20150506
  Receipt Date: 20150506
  Transmission Date: 20150821
  Serious: Yes (Hospitalization)
  Sender: FDA-Public Use
  Company Number: None

PATIENT
  Age: 2 Year
  Sex: Female
  Weight: 16.2 kg

DRUGS (1)
  1. CYTARABINE. [Suspect]
     Active Substance: CYTARABINE
     Indication: INFECTION
     Dates: start: 20150331

REACTIONS (4)
  - Sepsis [None]
  - Meningoencephalitis herpetic [None]
  - Partial seizures [None]
  - Pseudomonas infection [None]

NARRATIVE: CASE EVENT DATE: 20150429
